FAERS Safety Report 14817217 (Version 1)
Quarter: 2018Q2

REPORT INFORMATION
  Report Type: Spontaneous
  Country: JP (occurrence: JP)
  Receive Date: 20180426
  Receipt Date: 20180426
  Transmission Date: 20180711
  Serious: Yes (Other)
  Sender: FDA-Public Use
  Company Number: JP-TEVA-2018-JP-886770

PATIENT
  Age: 83 Year
  Sex: Female

DRUGS (10)
  1. LOXOPROFEN SODIUM [Concomitant]
     Active Substance: LOXOPROFEN SODIUM
  2. FUROSEMIDE. [Concomitant]
     Active Substance: FUROSEMIDE
  3. LIMAPROST ALFADEX [Concomitant]
     Active Substance: LIMAPROST
  4. BENET [Suspect]
     Active Substance: RISEDRONATE SODIUM
     Indication: PRODUCT USED FOR UNKNOWN INDICATION
     Dosage: 17.5 MG, Q WEEK
     Route: 048
  5. SPIRONOLACTONE. [Concomitant]
     Active Substance: SPIRONOLACTONE
  6. ONON [Concomitant]
     Active Substance: PRANLUKAST
  7. REBAMIPIDE [Concomitant]
     Active Substance: REBAMIPIDE
  8. THEO-DUR [Concomitant]
     Active Substance: THEOPHYLLINE ANHYDROUS
  9. EDIROL [Concomitant]
     Active Substance: ELDECALCITOL
  10. EPADEL [Concomitant]
     Active Substance: ICOSAPENT

REACTIONS (1)
  - Urinary retention [Unknown]

NARRATIVE: CASE EVENT DATE: 20180323
